FAERS Safety Report 6370185-9 (Version None)
Quarter: 2009Q3

REPORT INFORMATION
  Report Type: 
  Country: None (occurrence: None)
  Receive Date: 20090923
  Receipt Date: 20090915
  Transmission Date: 20100115
  Serious: Yes (Hospitalization)
  Sender: FDA-Public Use
  Company Number: US-PFIZER INC-2009230238

PATIENT
  Sex: Female
  Weight: 62.585 kg

DRUGS (4)
  1. DILANTIN [Interacting]
     Indication: CONVULSION
     Dosage: 100 MG, UNK
  2. DILANTIN [Suspect]
     Dosage: 100 MG, 2X/DAY
     Route: 048
     Dates: start: 19630101
  3. PRIMIDONE [Suspect]
     Indication: CONVULSION
     Dosage: 250 MG, DAILY
     Route: 048
     Dates: start: 20080101
  4. SYNTHROID [Interacting]
     Indication: THYROID HORMONE REPLACEMENT THERAPY

REACTIONS (7)
  - DRUG INEFFECTIVE [None]
  - DRUG INTERACTION [None]
  - OSTEOMALACIA [None]
  - OSTEOPOROSIS [None]
  - PETIT MAL EPILEPSY [None]
  - TREMOR [None]
  - WEIGHT INCREASED [None]
